FAERS Safety Report 17438366 (Version 1)
Quarter: 2020Q1

REPORT INFORMATION
  Report Type: Spontaneous
  Country: US (occurrence: US)
  Receive Date: 20200220
  Receipt Date: 20200220
  Transmission Date: 20200409
  Serious: Yes (Other)
  Sender: FDA-Public Use
  Company Number: US-GYP-000072

PATIENT
  Age: 49 Year

DRUGS (2)
  1. PREDNISONE. [Suspect]
     Active Substance: PREDNISONE
     Indication: SARCOIDOSIS
     Dosage: TAPERED FROM 40 TO 3 MG DAILY
     Route: 065
  2. PREDNISONE. [Suspect]
     Active Substance: PREDNISONE
     Indication: SARCOIDOSIS
     Route: 065

REACTIONS (3)
  - Condition aggravated [Unknown]
  - Sarcoidosis [Unknown]
  - Product use in unapproved indication [Unknown]
